FAERS Safety Report 5591815-5 (Version None)
Quarter: 2008Q1

REPORT INFORMATION
  Report Type: 
  Country: None (occurrence: None)
  Receive Date: 20080115
  Receipt Date: 20080110
  Transmission Date: 20080703
  Serious: Yes (Hospitalization)
  Sender: FDA-Public Use
  Company Number: US-ASTRAZENECA-2007UW23956

PATIENT
  Age: 72 Year
  Sex: Female
  Weight: 60 kg

DRUGS (12)
  1. SEROQUEL [Suspect]
     Indication: BIPOLAR DISORDER
     Dosage: 200-600MG
     Route: 048
     Dates: start: 20040101, end: 20060101
  2. SEROQUEL [Suspect]
     Route: 048
     Dates: start: 20060831
  3. LISINOPRIL [Concomitant]
  4. METFORMIN HCL [Concomitant]
  5. PAROXETINE [Concomitant]
  6. PHENYTOIN [Concomitant]
  7. NEURONTIN [Concomitant]
  8. KLONOPIN [Concomitant]
  9. SIMVASTATIN [Concomitant]
  10. GLIPIZIDE [Concomitant]
  11. LORAZEPAM [Concomitant]
  12. VICODIN [Concomitant]

REACTIONS (4)
  - FALL [None]
  - HEAD INJURY [None]
  - ORTHOSTATIC HYPOTENSION [None]
  - SKIN LACERATION [None]
